FAERS Safety Report 8354745 (Version 3)
Quarter: 2012Q4

REPORT INFORMATION
  Report Type: 
  Country: US (occurrence: US)
  Receive Date: 20120125
  Receipt Date: 20121128
  Transmission Date: 20130627
  Serious: Yes (Hospitalization, Other)
  Sender: FDA-Public Use
  Company Number: US-ASTRAZENECA-2012SE02934

PATIENT
  Age: 54 Year
  Sex: Female
  Weight: 83.9 kg

DRUGS (11)
  1. NEXIUM [Suspect]
     Indication: OESOPHAGITIS
     Route: 048
     Dates: start: 2004
  2. NEXIUM [Suspect]
     Indication: HIATUS HERNIA
     Route: 048
     Dates: start: 2004
  3. NEXIUM [Suspect]
     Indication: GASTRIC ULCER
     Route: 048
     Dates: start: 2004
  4. OMEPRAZOLE [Concomitant]
     Route: 048
  5. KLONOPIN [Concomitant]
     Indication: MENTAL DISORDER
  6. LAMICTAL [Concomitant]
     Indication: MENTAL DISORDER
  7. ZOLOFT [Concomitant]
     Indication: MENTAL DISORDER
  8. AMBIEN [Concomitant]
     Dosage: AT NIGHT
  9. VITAMINS [Concomitant]
  10. DEXILANT [Concomitant]
  11. PROTONIX [Concomitant]

REACTIONS (18)
  - Erosive oesophagitis [Unknown]
  - Oesophageal ulcer [Unknown]
  - Bezoar [Unknown]
  - Gastritis [Unknown]
  - Impaired gastric emptying [Unknown]
  - Hiatus hernia [Unknown]
  - Gastrooesophageal reflux disease [Unknown]
  - Suicidal ideation [Unknown]
  - Haematemesis [Unknown]
  - Aphagia [Unknown]
  - Dysphagia [Unknown]
  - Dysphagia [Unknown]
  - Oesophagitis [Unknown]
  - Abdominal pain upper [Unknown]
  - Nausea [Unknown]
  - Intentional drug misuse [Unknown]
  - Drug prescribing error [Unknown]
  - Drug dose omission [Unknown]
